FAERS Safety Report 10038697 (Version 1)
Quarter: 2014Q1

REPORT INFORMATION
  Report Type: Spontaneous
  Country: US (occurrence: None)
  Receive Date: 20140306
  Receipt Date: 20140306
  Transmission Date: 20141002
  Serious: Yes (Hospitalization)
  Sender: FDA-Public Use
  Company Number: 163-21880-13072969

PATIENT
  Age: 76 Year
  Sex: Female
  Weight: 93.4 kg

DRUGS (7)
  1. REVLIMID (LENALIDOMIDE) (10 MILLIGRAM, CAPSULES) [Suspect]
     Indication: BLADDER CANCER
     Dosage: 28 IN 28 D
     Route: 048
     Dates: start: 20121217
  2. AMLODIPINE (AMLODIPINE) (UNKNOWN) [Concomitant]
  3. ASA (ACETYLSALICYLIC ACID) (UNKNOWN) [Concomitant]
  4. ENALAPRIL (ENALAPRIL) (UNKNOWN) [Concomitant]
  5. INSULIN (INSULIN) (INJECTION) [Concomitant]
  6. LEVOTHYROXINE (LEVOTHYROXINE) (UNKNOWN) [Concomitant]
  7. SIMVASTATIN (SIMVASTATIN) (UNKNOWN) [Concomitant]

REACTIONS (1)
  - Myocardial infarction [None]
